FAERS Safety Report 22267159 (Version 1)
Quarter: 2023Q2

REPORT INFORMATION
  Report Type: Spontaneous
  Country: US (occurrence: US)
  Receive Date: 20230428
  Receipt Date: 20230428
  Transmission Date: 20230721
  Serious: Yes (Other)
  Sender: FDA-Public Use
  Company Number: US-MALLINCKRODT-MNK202301224

PATIENT
  Age: 68 Year
  Sex: Female

DRUGS (1)
  1. CORTICOTROPIN [Suspect]
     Active Substance: CORTICOTROPIN
     Indication: Multiple sclerosis
     Dosage: 1 MILLILITER (80 UNITS), DAILY FOR 5 DAYS
     Route: 058
     Dates: start: 202304

REACTIONS (2)
  - Multiple sclerosis relapse [Unknown]
  - Depression [Unknown]

NARRATIVE: CASE EVENT DATE: 20230401
